FAERS Safety Report 16901336 (Version 1)
Quarter: 2019Q4

REPORT INFORMATION
  Report Type: Spontaneous
  Country: CN (occurrence: CN)
  Receive Date: 20191009
  Receipt Date: 20191009
  Transmission Date: 20200122
  Serious: Yes (Hospitalization)
  Sender: FDA-Public Use
  Company Number: CN-BAXTER-2019BAX019625

PATIENT
  Age: 50 Year
  Sex: Female
  Weight: 72 kg

DRUGS (8)
  1. ENDOXAN [Suspect]
     Active Substance: CYCLOPHOSPHAMIDE
     Indication: BREAST CANCER
     Dosage: ENDOXAN 1000 MG + SODIUM CHLORIDE 100 ML
     Route: 041
     Dates: start: 20190903, end: 20190903
  2. PIRARUBICIN HYDROCHLORIDE [Suspect]
     Active Substance: PIRARUBICIN HYDROCHLORIDE
     Dosage: DOSE RE-INTRODUCED, PIRARUBICIN HYDROCHLORIDE + GLUCOSE
     Route: 041
     Dates: start: 201909
  3. ENDOXAN [Suspect]
     Active Substance: CYCLOPHOSPHAMIDE
     Dosage: DOSE RE-INTRODUCED, ENDOXAN + SODIUM CHLORIDE
     Route: 041
     Dates: start: 201909
  4. 5% GLUCOSE  INJECTION [Suspect]
     Active Substance: DEXTROSE
     Dosage: DOSE RE-INTRODUCED, GLUCOSE + PIRARUBICIN HYDROCHLORIDE
     Route: 041
     Dates: start: 201909
  5. 0.9% SODIUM CHLORIDE INJECTION [Suspect]
     Active Substance: SODIUM CHLORIDE
     Indication: MEDICATION DILUTION
     Dosage: SODIUM CHLORIDE 100 ML + ENDOXAN 1000 MG
     Route: 041
     Dates: start: 20190903, end: 20190903
  6. 5% GLUCOSE  INJECTION [Suspect]
     Active Substance: DEXTROSE
     Indication: MEDICATION DILUTION
     Dosage: GLUCOSE + PIRARUBICIN HYDROCHLORIDE 50 MG
     Route: 041
     Dates: start: 20190903, end: 20190904
  7. PIRARUBICIN HYDROCHLORIDE [Suspect]
     Active Substance: PIRARUBICIN HYDROCHLORIDE
     Indication: BREAST CANCER
     Dosage: PIRARUBICIN HYDROCHLORIDE 50 MG + GLUCOSE 100 ML
     Route: 041
     Dates: start: 20190903, end: 20190904
  8. 0.9% SODIUM CHLORIDE INJECTION [Suspect]
     Active Substance: SODIUM CHLORIDE
     Dosage: DOSE RE-INTRODUCED, SODIUM CHLORIDE + ENDOXAN
     Route: 041
     Dates: start: 201909

REACTIONS (1)
  - Liver injury [Recovered/Resolved]

NARRATIVE: CASE EVENT DATE: 20190923
